FAERS Safety Report 10571298 (Version 1)
Quarter: 2014Q4

REPORT INFORMATION
  Report Type: Spontaneous
  Country: US (occurrence: US)
  Receive Date: 20141107
  Receipt Date: 20141107
  Transmission Date: 20150529
  Serious: Yes (Other)
  Sender: FDA-Public Use
  Company Number: US-GLAXOSMITHKLINE-US2014GSK017449

PATIENT
  Sex: Male

DRUGS (1)
  1. ROSIGLITAZONE MALEATE. [Suspect]
     Active Substance: ROSIGLITAZONE MALEATE
     Indication: DIABETES MELLITUS
     Dosage: 8 MG, QD
     Dates: start: 20060223, end: 20080908

REACTIONS (5)
  - Myocardial ischaemia [Unknown]
  - Atrial fibrillation [Unknown]
  - Angina unstable [Unknown]
  - Coronary artery disease [Unknown]
  - Cardiac failure congestive [Unknown]
